FAERS Safety Report 9846623 (Version 1)
Quarter: 2014Q1

REPORT INFORMATION
  Report Type: Spontaneous
  Country: US (occurrence: None)
  Receive Date: 20140123
  Receipt Date: 20140123
  Transmission Date: 20141002
  Serious: Yes (Death, Life-Threatening, Hospitalization)
  Sender: FDA-Public Use
  Company Number: None

PATIENT
  Age: 54 Year
  Sex: Male
  Weight: 113 kg

DRUGS (1)
  1. BASILIXIMAB [Suspect]
     Indication: PROPHYLAXIS AGAINST TRANSPLANT REJECTION
     Dosage: Q96H X 2 DOSES INTRAVENOUS
     Dates: start: 20070516, end: 20070520

REACTIONS (1)
  - Graft versus host disease [None]
